FAERS Safety Report 16682933 (Version 1)
Quarter: 2019Q3

REPORT INFORMATION
  Report Type: Report from Study
  Country: PK (occurrence: PK)
  Receive Date: 20190808
  Receipt Date: 20190808
  Transmission Date: 20191004
  Serious: Yes (Hospitalization)
  Sender: FDA-Public Use
  Company Number: PHHY2019PK181387

PATIENT
  Age: 29 Year
  Sex: Male

DRUGS (4)
  1. REVOLADE [Concomitant]
     Active Substance: ELTROMBOPAG
     Indication: PRODUCT USED FOR UNKNOWN INDICATION
     Dosage: 25 MG, UNK
     Route: 065
  2. SANDIMMUN NEORAL [Suspect]
     Active Substance: CYCLOSPORINE
     Indication: TRANSPLANT
     Dosage: 2 DF (25 MG), QD
     Route: 048
     Dates: start: 20190628, end: 20190718
  3. REVOLADE [Concomitant]
     Active Substance: ELTROMBOPAG
     Dosage: 50 MG, UNK
     Route: 065
  4. SANDIMMUN NEORAL [Suspect]
     Active Substance: CYCLOSPORINE
     Dosage: 3 DF (100 MG), QD
     Route: 048
     Dates: start: 20190628, end: 20190718

REACTIONS (1)
  - Diarrhoea haemorrhagic [Recovered/Resolved]

NARRATIVE: CASE EVENT DATE: 20190717
